FAERS Safety Report 9342156 (Version 1)
Quarter: 2013Q2

REPORT INFORMATION
  Report Type: Spontaneous
  Country: DE (occurrence: None)
  Receive Date: 20130606
  Receipt Date: 20130606
  Transmission Date: 20140414
  Serious: Yes (Other)
  Sender: FDA-Public Use
  Company Number: E2B_00000873

PATIENT
  Age: 20 Year
  Sex: Female
  Weight: 65 kg

DRUGS (5)
  1. LAMOTRIGINE [Suspect]
     Indication: EPILEPSY
     Route: 048
     Dates: start: 20121015, end: 20130305
  2. TOPIRAMATE [Suspect]
     Indication: EPILEPSY
     Route: 048
     Dates: start: 20121015, end: 20130305
  3. FOLIC ACID (FOLASURE) (UNKNOWN) [Concomitant]
  4. CEFUROXIME (CEFUROXIM) (UNKNOWN) [Concomitant]
  5. HYOSCINE BUTYLBROMIDE (BUSCOPAN AMPULLEN) (UNKNOWN) [Concomitant]

REACTIONS (3)
  - Abortion [None]
  - Premature rupture of membranes [None]
  - Maternal drugs affecting foetus [None]
